FAERS Safety Report 4576350-5 (Version None)
Quarter: 2005Q1

REPORT INFORMATION
  Report Type: 
  Country: None (occurrence: None)
  Receive Date: 20050207
  Receipt Date: 20050201
  Transmission Date: 20050727
  Serious: Yes (Death)
  Sender: FDA-Public Use
  Company Number: 2005-124784-NL

PATIENT
  Age: 43 Year
  Sex: Male

DRUGS (14)
  1. DANAPAROID SODIUM [Suspect]
     Indication: DISSEMINATED INTRAVASCULAR COAGULATION
     Dosage: 1250 ANTI_XA INTRAVENOUS (NOS)
     Route: 042
     Dates: start: 20040322, end: 20040328
  2. HYDROCORTISONE SODIUM SUCCINATE [Concomitant]
  3. CHLORPHENIRAMINE MALEATE [Concomitant]
  4. AMPHOTERICIN B [Concomitant]
  5. PANTHENOL [Concomitant]
  6. VITAJECT [Concomitant]
  7. ELEMENMIC [Concomitant]
  8. VANCOMYCIN HYDROCHLORIDE [Concomitant]
  9. POTASSIUM CHLORIDE [Concomitant]
  10. CARBAZOCHROME SODIUM SULFONATE [Concomitant]
  11. FUROSEMIDE [Concomitant]
  12. GRANISETRON  HCL [Concomitant]
  13. INSULIN HUMAN [Concomitant]
  14. SULPYRINE [Concomitant]

REACTIONS (3)
  - CONDITION AGGRAVATED [None]
  - LEUKAEMIA [None]
  - SEPSIS [None]
